FAERS Safety Report 8970052 (Version 1)
Quarter: 2012Q4

REPORT INFORMATION
  Report Type: 
  Country: US (occurrence: US)
  Receive Date: 20121218
  Receipt Date: 20121218
  Transmission Date: 20130627
  Serious: No
  Sender: FDA-Public Use
  Company Number: US-BRISTOL-MYERS SQUIBB COMPANY-16210957

PATIENT
  Age: 28 Year
  Sex: Male

DRUGS (4)
  1. ABILIFY [Suspect]
     Indication: SCHIZOPHRENIA, PARANOID TYPE
     Dates: start: 201004, end: 201110
  2. LITHIUM [Concomitant]
     Dosage: Also administered as 300 mg 2b.i.d.
  3. STRATTERA [Concomitant]
     Dosage: Brand Names: Strattera
  4. INDERAL LA [Concomitant]

REACTIONS (3)
  - Blood creatine phosphokinase increased [Not Recovered/Not Resolved]
  - Pain in extremity [Unknown]
  - Fatigue [Unknown]
